FAERS Safety Report 6404161-4 (Version None)
Quarter: 2009Q4

REPORT INFORMATION
  Report Type: 
  Country: None (occurrence: None)
  Receive Date: 20091016
  Receipt Date: 20090916
  Transmission Date: 20100525
  Serious: Yes (Hospitalization)
  Sender: FDA-Public Use
  Company Number: US-ALEXION-A200900745

PATIENT
  Sex: Male

DRUGS (23)
  1. SOLIRIS [Suspect]
     Indication: PAROXYSMAL NOCTURNAL HAEMOGLOBINURIA
     Dosage: 600 MG, QW
     Route: 042
     Dates: start: 20070502, end: 20070523
  2. SOLIRIS [Suspect]
     Dosage: 900 MG, Q2W
     Route: 042
     Dates: start: 20070530
  3. SOLIRIS [Suspect]
     Dosage: 900 MG, Q12D
     Route: 042
  4. SOLIRIS [Suspect]
     Dosage: UNK
  5. SALINE                             /00075401/ [Concomitant]
     Indication: NASAL DRYNESS
     Dosage: UNK
  6. METHADONE HYDROCHLORIDE [Concomitant]
     Dosage: 20 MG, TID (Q8H)
     Route: 048
  7. METHADONE HYDROCHLORIDE [Concomitant]
     Dosage: 30 MG, TID (Q8H)
     Route: 048
     Dates: start: 20090901
  8. FRAGMIN [Concomitant]
     Dosage: 12500 IU, QD
     Route: 058
  9. SPIRIVA [Concomitant]
     Dosage: 18 UG, QD
  10. COMBIVENT [Concomitant]
     Dosage: 2 INHALATIONS, 4 TIMES DAILY
  11. SENNA-MINT WAF [Concomitant]
     Dosage: 2 TABLETS TWICE DAILY
     Route: 048
  12. ALBUTEROL [Concomitant]
     Indication: DYSPNOEA
     Dosage: 2 INHALATIONS 4 TIMES DAILY AS NEEDED
  13. FLONASE [Concomitant]
     Dosage: ONE SPRAY DAILY
  14. SEROQUEL [Concomitant]
     Dosage: 50 MG, TID
     Route: 048
  15. CYMBALTA [Concomitant]
     Dosage: 60 MG, TID
     Route: 048
  16. FOLIC ACID [Concomitant]
     Dosage: 1 MG, QD
     Route: 048
  17. KLONOPIN [Concomitant]
     Dosage: 1 MG, QD
     Route: 048
  18. POTASSIUM CHLORIDE [Concomitant]
     Dosage: 20 MEQ, QD
     Route: 048
  19. MARINOL [Concomitant]
     Dosage: 2.5 MG, BID
     Route: 048
  20. ADVAIR DISKUS 100/50 [Concomitant]
     Dosage: 500/50 MCG, BID
  21. PRILOSEC [Concomitant]
     Dosage: 20 MG, QD
     Route: 048
  22. NYSTATIN [Concomitant]
     Dosage: 5 MG, QID
  23. OXYGEN [Concomitant]
     Indication: CHRONIC OBSTRUCTIVE PULMONARY DISEASE
     Dosage: UNK

REACTIONS (3)
  - CHRONIC OBSTRUCTIVE PULMONARY DISEASE [None]
  - ESSENTIAL HYPERTENSION [None]
  - STAPHYLOCOCCAL INFECTION [None]
